FAERS Safety Report 9686675 (Version 1)
Quarter: 2013Q4

REPORT INFORMATION
  Report Type: Spontaneous
  Country: US (occurrence: US)
  Receive Date: 20131113
  Receipt Date: 20131113
  Transmission Date: 20140711
  Serious: Yes (Other)
  Sender: FDA-Public Use
  Company Number: US-PFIZER INC-2013321195

PATIENT
  Age: 35 Year
  Sex: Male

DRUGS (2)
  1. LYRICA [Suspect]
     Indication: PAIN
     Dosage: UNK
  2. DIAZEPAM [Concomitant]
     Indication: STIFF PERSON SYNDROME

REACTIONS (7)
  - Stiff person syndrome [Unknown]
  - Drug intolerance [Unknown]
  - Impaired gastric emptying [Unknown]
  - Paranoia [Unknown]
  - Impaired work ability [Unknown]
  - Fatigue [Unknown]
  - Poor quality sleep [Unknown]
